FAERS Safety Report 8983269 (Version 3)
Quarter: 2013Q2

REPORT INFORMATION
  Report Type: Report from Study
  Country: JP (occurrence: JP)
  Receive Date: 20121221
  Receipt Date: 20130418
  Transmission Date: 20140414
  Serious: Yes (Hospitalization)
  Sender: FDA-Public Use
  Company Number: JP-ABBOTT-12P-087-1024256-00

PATIENT
  Age: 37 Year
  Sex: Male

DRUGS (4)
  1. KALETRA [Suspect]
     Indication: HIV INFECTION
     Route: 048
     Dates: start: 20061107
  2. STOCRIN [Suspect]
     Indication: HIV INFECTION
  3. EPZICOM [Suspect]
     Indication: HIV INFECTION
     Route: 048
  4. VIREAD [Suspect]
     Indication: HIV INFECTION
     Route: 048

REACTIONS (3)
  - Anal cancer [Not Recovered/Not Resolved]
  - Red blood cell count decreased [Not Recovered/Not Resolved]
  - Haemoglobin decreased [Not Recovered/Not Resolved]
